FAERS Safety Report 10094397 (Version 1)
Quarter: 2014Q2

REPORT INFORMATION
  Report Type: Spontaneous
  Country: FR (occurrence: None)
  Receive Date: 20140418
  Receipt Date: 20140418
  Transmission Date: 20141212
  Serious: Yes (Hospitalization)
  Sender: FDA-Public Use
  Company Number: 2014RT000039

PATIENT
  Age: 49 Year
  Sex: Male

DRUGS (3)
  1. CYST-HD (RP103) [Suspect]
     Indication: HUNTINGTON^S DISEASE
     Route: 048
  2. XENAZINE (TETRABENAZINE) [Concomitant]
  3. NORSET [Concomitant]

REACTIONS (2)
  - Speech disorder developmental [None]
  - Transient ischaemic attack [None]
